FAERS Safety Report 9174036 (Version 1)
Quarter: 2013Q1

REPORT INFORMATION
  Report Type: Spontaneous
  Country: GB (occurrence: GB)
  Receive Date: 20130320
  Receipt Date: 20130320
  Transmission Date: 20140127
  Serious: Yes (Other)
  Sender: FDA-Public Use
  Company Number: PHHY2013GB025763

PATIENT
  Age: 37 Year
  Sex: Female

DRUGS (1)
  1. METFORMIN [Suspect]

REACTIONS (4)
  - MELAS syndrome [Recovering/Resolving]
  - Lactic acidosis [Recovered/Resolved]
  - Convulsion [Recovering/Resolving]
  - Postictal state [Recovering/Resolving]
